FAERS Safety Report 14407672 (Version 1)
Quarter: 2018Q1

REPORT INFORMATION
  Report Type: Spontaneous
  Country: US (occurrence: US)
  Receive Date: 20180117
  Receipt Date: 20180117
  Transmission Date: 20180509
  Serious: Yes (Life-Threatening, Disabling, Other)
  Sender: FDA-Public Use
  Company Number: None

PATIENT
  Sex: Female
  Weight: 80.55 kg

DRUGS (1)
  1. TOPAMAX [Suspect]
     Active Substance: TOPIRAMATE
     Indication: BIPOLAR DISORDER
     Dosage: ?          QUANTITY:1 TABLET(S);?
     Route: 048
     Dates: start: 20160105, end: 20180102

REACTIONS (7)
  - Hypoacusis [None]
  - Eating disorder [None]
  - Musculoskeletal pain [None]
  - Alopecia [None]
  - Arthralgia [None]
  - Neck pain [None]
  - Visual acuity reduced [None]

NARRATIVE: CASE EVENT DATE: 20180102
